FAERS Safety Report 7371314-0 (Version None)
Quarter: 2011Q1

REPORT INFORMATION
  Report Type: 
  Country: None (occurrence: None)
  Receive Date: 20110322
  Receipt Date: 20110322
  Transmission Date: 20110831
  Serious: Yes (Other)
  Sender: FDA-Public Use
  Company Number: None

PATIENT
  Age: 54 Year
  Sex: Female
  Weight: 88.4514 kg

DRUGS (1)
  1. NIACIN [Suspect]
     Indication: ROUTINE HEALTH MAINTENANCE
     Dosage: ONE TOOK ONE PILL PO
     Route: 048

REACTIONS (11)
  - FEELING HOT [None]
  - COUGH [None]
  - CHEST DISCOMFORT [None]
  - VISUAL IMPAIRMENT [None]
  - FALL [None]
  - DIARRHOEA [None]
  - SYNCOPE [None]
  - HEAD INJURY [None]
  - ERYTHEMA [None]
  - CYANOSIS [None]
  - DIZZINESS [None]
